FAERS Safety Report 5079255-9 (Version None)
Quarter: 2006Q3

REPORT INFORMATION
  Report Type: 
  Country: None (occurrence: None)
  Receive Date: 20060808
  Receipt Date: 20060726
  Transmission Date: 20061208
  Serious: Yes (Other)
  Sender: FDA-Public Use
  Company Number: 2006076885

PATIENT
  Age: 43 Year
  Sex: Male
  Weight: 95.2554 kg

DRUGS (5)
  1. LYRICA [Suspect]
     Indication: NEURALGIA
     Dosage: 150 MG (75 MG 2 IN 1 D)
     Dates: start: 20050801, end: 20060523
  2. ROXICODONE [Suspect]
     Indication: PAIN
     Dosage: 45 MG (15 MG 3 IN 1 D)
     Dates: end: 20060623
  3. SOMA [Concomitant]
  4. LIDODERM [Concomitant]
  5. KAPANOL (MORPHINE SULFATE) [Concomitant]

REACTIONS (8)
  - ARTHRALGIA [None]
  - ASTHENIA [None]
  - HEADACHE [None]
  - HYPOAESTHESIA [None]
  - PAIN IN EXTREMITY [None]
  - PARAESTHESIA [None]
  - SENSITIVITY OF TEETH [None]
  - TOOTHACHE [None]
